FAERS Safety Report 9143494 (Version 4)
Quarter: 2013Q1

REPORT INFORMATION
  Report Type: Spontaneous
  Country: GB (occurrence: GB)
  Receive Date: 20130306
  Receipt Date: 20130322
  Transmission Date: 20140127
  Serious: Yes (Other)
  Sender: FDA-Public Use
  Company Number: GB-PFIZER INC-2013072660

PATIENT
  Age: 65 Year
  Sex: Female
  Weight: 69.85 kg

DRUGS (3)
  1. ATORVASTATIN [Suspect]
     Dosage: 10 MG, UNK
     Dates: start: 201210
  2. PARACETAMOL [Concomitant]
     Dosage: UNK
  3. COD-LIVER OIL [Concomitant]
     Dosage: UNK

REACTIONS (6)
  - Nightmare [Unknown]
  - Chest pain [Unknown]
  - Pain in extremity [Unknown]
  - Asthenia [Unknown]
  - Muscle spasms [Unknown]
  - Urine output increased [Unknown]
